FAERS Safety Report 23953066 (Version 5)
Quarter: 2024Q4

REPORT INFORMATION
  Report Type: Spontaneous
  Country: IE (occurrence: IE)
  Receive Date: 20240608
  Receipt Date: 20241113
  Transmission Date: 20250115
  Serious: Yes (Other)
  Sender: UCB
  Company Number: None

PATIENT
  Age: 26 Year
  Sex: Female
  Weight: 77 kg

DRUGS (3)
  1. CIMZIA [Suspect]
     Active Substance: CERTOLIZUMAB PEGOL
     Indication: Spondylitis
     Dosage: SINGLE DOSE 400MG
     Route: 058
     Dates: start: 20240514
  2. CIMZIA [Suspect]
     Active Substance: CERTOLIZUMAB PEGOL
     Indication: Psoriatic arthropathy
  3. CIMZIA [Suspect]
     Active Substance: CERTOLIZUMAB PEGOL
     Indication: Off label use

REACTIONS (26)
  - Pain [Not Recovered/Not Resolved]
  - Diarrhoea [Recovered/Resolved]
  - Bone pain [Not Recovered/Not Resolved]
  - Ocular hyperaemia [Recovered/Resolved]
  - Muscular weakness [Not Recovered/Not Resolved]
  - Anaphylactic reaction [Recovered/Resolved]
  - Coordination abnormal [Recovered/Resolved]
  - Vision blurred [Recovered/Resolved]
  - Swelling of eyelid [Recovered/Resolved]
  - Nausea [Recovered/Resolved]
  - Urinary retention [Recovered/Resolved]
  - Vomiting [Recovered/Resolved]
  - Hypoaesthesia [Recovered/Resolved]
  - Asthenia [Recovered/Resolved]
  - Headache [Recovered/Resolved]
  - Blepharitis [Recovered/Resolved]
  - Pyrexia [Recovered/Resolved]
  - Lymphocytosis [Recovered/Resolved]
  - Blood creatine phosphokinase decreased [Recovered/Resolved]
  - Pain in extremity [Not Recovered/Not Resolved]
  - Myositis [Recovering/Resolving]
  - Joint swelling [Recovered/Resolved]
  - Neuralgic amyotrophy [Recovered/Resolved]
  - Inflammation [Not Recovered/Not Resolved]
  - Malaise [Recovered/Resolved]
  - Off label use [Unknown]

NARRATIVE: CASE EVENT DATE: 20240514
